FAERS Safety Report 16412859 (Version 7)
Quarter: 2020Q3

REPORT INFORMATION
  Report Type: Spontaneous
  Country: JP (occurrence: JP)
  Receive Date: 20190611
  Receipt Date: 20200731
  Transmission Date: 20201102
  Serious: Yes (Other)
  Sender: FDA-Public Use
  Company Number: JP-BRISTOL-MYERS SQUIBB COMPANY-BMS-2019-036021

PATIENT
  Age: 42 Year
  Sex: Male

DRUGS (1)
  1. OPDIVO [Suspect]
     Active Substance: NIVOLUMAB
     Indication: METASTATIC RENAL CELL CARCINOMA
     Dosage: 240 MILLIGRAM, Q2WK
     Route: 041
     Dates: start: 20180531, end: 20190403

REACTIONS (4)
  - Vogt-Koyanagi-Harada disease [Unknown]
  - Meningitis viral [Recovered/Resolved]
  - Uveitis [Recovered/Resolved]
  - Uveitic glaucoma [Unknown]

NARRATIVE: CASE EVENT DATE: 201809
